FAERS Safety Report 17520962 (Version 2)
Quarter: 2021Q1

REPORT INFORMATION
  Report Type: Spontaneous
  Country: GB (occurrence: GB)
  Receive Date: 20200309
  Receipt Date: 20210322
  Transmission Date: 20210419
  Serious: Yes (Other)
  Sender: FDA-Public Use
  Company Number: GB-BAUSCH-BL-2020-006757

PATIENT
  Age: 34 Year
  Sex: Female
  Weight: 85 kg

DRUGS (1)
  1. HYDROCORTISON PHARMASWISS (HYDROCORTISONE SODIUM SUCCINATE) [Suspect]
     Active Substance: HYDROCORTISONE SODIUM SUCCINATE
     Indication: ANAPHYLACTIC REACTION
     Dosage: INTENDED DOSE 200MG. FREQUENCY: IN TOTAL
     Route: 042
     Dates: start: 20200109, end: 20200109

REACTIONS (3)
  - Generalised tonic-clonic seizure [Recovered/Resolved]
  - Nervousness [Recovered/Resolved]
  - Tonic clonic movements [Recovered/Resolved]

NARRATIVE: CASE EVENT DATE: 20200109
